FAERS Safety Report 9633895 (Version 3)
Quarter: 2013Q4

REPORT INFORMATION
  Report Type: Report from Study
  Country: JP (occurrence: JP)
  Receive Date: 20131021
  Receipt Date: 20131122
  Transmission Date: 20140711
  Serious: Yes (Other)
  Sender: FDA-Public Use
  Company Number: JP-JNJFOC-20131007710

PATIENT
  Age: 60 Year
  Sex: Male
  Weight: 61 kg

DRUGS (29)
  1. ONE DURO [Suspect]
     Indication: CANCER PAIN
     Route: 062
     Dates: start: 20130201, end: 20130219
  2. ONE DURO [Suspect]
     Indication: CANCER PAIN
     Route: 062
     Dates: start: 20130128, end: 20130129
  3. ONE DURO [Suspect]
     Indication: CANCER PAIN
     Route: 062
     Dates: start: 20130130, end: 20130131
  4. DOMPERIDONE [Concomitant]
     Indication: NAUSEA
     Route: 054
     Dates: end: 20130207
  5. MAGMITT [Concomitant]
     Indication: CONSTIPATION
     Route: 048
     Dates: end: 20130131
  6. OXYCODONE HYDROCHLORIDE HYDRATE [Concomitant]
     Indication: CANCER PAIN
     Route: 048
     Dates: start: 20130210, end: 20130210
  7. OXYCODONE HYDROCHLORIDE HYDRATE [Concomitant]
     Indication: CANCER PAIN
     Dosage: RESCUE DOSE
     Route: 048
     Dates: start: 20130128, end: 20130128
  8. OXYCODONE HYDROCHLORIDE HYDRATE [Concomitant]
     Indication: CANCER PAIN
     Route: 048
     Dates: start: 20130129, end: 20130129
  9. OXYCODONE HYDROCHLORIDE HYDRATE [Concomitant]
     Indication: CANCER PAIN
     Route: 048
     Dates: start: 20130130, end: 20130130
  10. OXYCODONE HYDROCHLORIDE HYDRATE [Concomitant]
     Indication: CANCER PAIN
     Route: 048
     Dates: start: 20130130, end: 20130130
  11. OXYCODONE HYDROCHLORIDE HYDRATE [Concomitant]
     Indication: CANCER PAIN
     Route: 048
     Dates: start: 20130131, end: 20130131
  12. OXYCODONE HYDROCHLORIDE HYDRATE [Concomitant]
     Indication: CANCER PAIN
     Route: 048
     Dates: start: 20130208, end: 20130208
  13. OXYCODONE HYDROCHLORIDE HYDRATE [Concomitant]
     Indication: CANCER PAIN
     Route: 048
     Dates: start: 20130207, end: 20130207
  14. OXYCODONE HYDROCHLORIDE HYDRATE [Concomitant]
     Indication: CANCER PAIN
     Route: 048
     Dates: start: 20130204, end: 20130206
  15. OXYCODONE HYDROCHLORIDE HYDRATE [Concomitant]
     Indication: CANCER PAIN
     Route: 048
     Dates: start: 20130201, end: 20130202
  16. OXYCODONE HYDROCHLORIDE HYDRATE [Concomitant]
     Indication: CANCER PAIN
     Route: 048
     Dates: start: 20130201, end: 20130201
  17. PARIET [Concomitant]
     Indication: GASTRIC ULCER
     Route: 048
     Dates: end: 20130131
  18. TAKEPRON [Concomitant]
     Indication: GASTRIC ULCER
     Route: 048
     Dates: start: 20130201
  19. MAGNESIUM OXIDE [Concomitant]
     Indication: CONSTIPATION
     Route: 048
     Dates: start: 20130201
  20. SENNOSIDE [Concomitant]
     Indication: CONSTIPATION
     Route: 048
  21. LAC-B [Concomitant]
     Indication: CONSTIPATION
     Route: 048
  22. MELOXICAM [Concomitant]
     Indication: CANCER PAIN
     Route: 048
     Dates: end: 20130214
  23. ZYPREXA [Concomitant]
     Indication: NAUSEA
     Route: 048
     Dates: start: 20130201
  24. FUROSEMIDE [Concomitant]
     Indication: OLIGURIA
     Route: 048
     Dates: start: 20130201
  25. NAIXAN [Concomitant]
     Indication: PYREXIA
     Route: 048
     Dates: start: 20130209
  26. MEROPENEM [Concomitant]
     Indication: PROPHYLAXIS
     Route: 065
     Dates: end: 20130201
  27. ELIETEN [Concomitant]
     Indication: NAUSEA
     Route: 065
     Dates: end: 20130201
  28. CEFEPIME DIHYDROCHLORIDE [Concomitant]
     Indication: PROPHYLAXIS
     Route: 065
     Dates: start: 20130215, end: 20130217
  29. GRAN [Concomitant]
     Indication: PROPHYLAXIS
     Route: 065
     Dates: start: 20130215, end: 20130217

REACTIONS (2)
  - Delirium [Recovering/Resolving]
  - Pyrexia [Recovering/Resolving]
